FAERS Safety Report 9366513 (Version 2)
Quarter: 2013Q3

REPORT INFORMATION
  Report Type: Spontaneous
  Country: ES (occurrence: DE)
  Receive Date: 20130625
  Receipt Date: 20130911
  Transmission Date: 20140515
  Serious: Yes (Death)
  Sender: FDA-Public Use
  Company Number: DE-FRI-1000046204

PATIENT
  Sex: Male

DRUGS (2)
  1. ACLIDINIUM [Suspect]
  2. FORMOTEROL [Concomitant]

REACTIONS (3)
  - Death [Fatal]
  - Cough [Not Recovered/Not Resolved]
  - Dry mouth [Not Recovered/Not Resolved]
